FAERS Safety Report 12907626 (Version 4)
Quarter: 2017Q1

REPORT INFORMATION
  Report Type: Report from Study
  Country: DK (occurrence: DK)
  Receive Date: 20161103
  Receipt Date: 20170317
  Transmission Date: 20170428
  Serious: Yes (Life-Threatening, Hospitalization)
  Sender: FDA-Public Use
  Company Number: DK-PFIZER INC-2016156844

PATIENT
  Age: 20 Year
  Sex: Female

DRUGS (2)
  1. MENINGOCOCCAL GROUP B RLP2086 [Suspect]
     Active Substance: INVESTIGATIONAL PRODUCT
     Indication: IMMUNISATION
     Dosage: 0.5 ML, SINGLE
     Route: 030
     Dates: start: 20150921, end: 20150921
  2. AMLODIPINE BESILATE [Suspect]
     Active Substance: AMLODIPINE BESYLATE
     Dosage: 1000 MG, SINGLE

REACTIONS (1)
  - Suicide attempt [Recovered/Resolved with Sequelae]

NARRATIVE: CASE EVENT DATE: 20160205
